FAERS Safety Report 4823496-X (Version None)
Quarter: 2005Q4

REPORT INFORMATION
  Report Type: 
  Country: None (occurrence: None)
  Receive Date: 20051109
  Receipt Date: 20051104
  Transmission Date: 20060501
  Serious: Yes (Death)
  Sender: FDA-Public Use
  Company Number: 2005UW16779

PATIENT

DRUGS (2)
  1. SEROQUEL [Suspect]
     Route: 048
  2. ZYPREXA [Concomitant]

REACTIONS (3)
  - COGNITIVE DISORDER [None]
  - DEATH [None]
  - DELIRIUM [None]
